FAERS Safety Report 9249025 (Version 1)
Quarter: 2013Q1

REPORT INFORMATION
  Report Type: Spontaneous
  Country: US (occurrence: None)
  Receive Date: 20130305
  Receipt Date: 20130305
  Transmission Date: 20140127
  Serious: Yes (Hospitalization, Disabling)
  Sender: FDA-Public Use
  Company Number: 163-21880-12060361

PATIENT
  Age: 86 Year
  Sex: Male

DRUGS (34)
  1. REVLIMID [Suspect]
     Indication: PLASMA CELL MYELOMA
     Dosage: 12.5 MG, 1 IN 2 D
     Route: 048
     Dates: start: 20070905
  2. DOXYCYLINE [Concomitant]
  3. NITROSTAT [Concomitant]
  4. CARVEDILOL [Concomitant]
  5. NORCO [Concomitant]
  6. LORAZEPAM [Concomitant]
  7. ZALEPLON [Concomitant]
  8. COUMADIN [Concomitant]
  9. ASPIRIN [Concomitant]
  10. DOCUSATE SODIUM (DOCUSATE SODIUM) [Concomitant]
  11. OMEPRAZOLE [None]
  12. DEXAMETHASONE [Concomitant]
  13. ALLOPURINOL [Concomitant]
  14. RENVELA [Concomitant]
  15. PHOSLO [Concomitant]
  16. MAGNESIUM OXIDE [Concomitant]
  17. MULTIVITAMINS [Concomitant]
  18. LEXAPRO [Concomitant]
  19. ZYPREXA ZYDIS [Concomitant]
  20. ZYRTEC [Concomitant]
  21. PROVENTIL [Concomitant]
  22. ATROVENT [Concomitant]
  23. CETIRIZINE [Concomitant]
  24. CIPRO [Concomitant]
  25. ATIVAN [Concomitant]
  26. NITROGLYCERIN [Concomitant]
  27. POTASSIUM CHLORIDE [Concomitant]
  28. LASIX [Concomitant]
  29. NEURONTIN [Concomitant]
  30. COLACE [Concomitant]
  31. CALCIUM [Concomitant]
  32. B 12 [Concomitant]
  33. TYLENOL [Concomitant]
  34. BARIUM SULFATE [Concomitant]

REACTIONS (4)
  - Pneumonia [None]
  - Sepsis [None]
  - Renal failure [None]
  - Urinary tract infection [None]
